FAERS Safety Report 24546822 (Version 1)
Quarter: 2024Q4

REPORT INFORMATION
  Report Type: Spontaneous
  Country: CN (occurrence: CN)
  Receive Date: 20241024
  Receipt Date: 20241024
  Transmission Date: 20250114
  Serious: Yes (Hospitalization, Disabling)
  Sender: BEIGENE
  Company Number: CN-BEIGENE-BGN-2024-016499

PATIENT

DRUGS (3)
  1. TISLELIZUMAB [Suspect]
     Active Substance: TISLELIZUMAB
     Indication: Soft tissue sarcoma
     Dosage: 0.2 GRAM
     Route: 041
     Dates: start: 20240915
  2. CARBOPLATIN [Suspect]
     Active Substance: CARBOPLATIN
     Indication: Soft tissue sarcoma
     Dosage: 0.35 GRAM
     Route: 041
     Dates: start: 20240915
  3. PACLITAXEL [Suspect]
     Active Substance: PACLITAXEL
     Indication: Soft tissue sarcoma
     Dosage: 300 MILLIGRAM
     Route: 041
     Dates: start: 20240915

REACTIONS (1)
  - Myelosuppression [Recovering/Resolving]

NARRATIVE: CASE EVENT DATE: 20240928
